FAERS Safety Report 5073318-X (Version None)
Quarter: 2006Q3

REPORT INFORMATION
  Report Type: 
  Country: None (occurrence: None)
  Receive Date: 20060808
  Receipt Date: 20060801
  Transmission Date: 20061208
  Serious: Yes (Other)
  Sender: FDA-Public Use
  Company Number: US-BAYER-200613244BCC

PATIENT
  Age: 83 Year
  Sex: Female
  Weight: 55 kg

DRUGS (6)
  1. CONCENTRATED PHILLIPS STRAWBERRY [Suspect]
     Indication: CONSTIPATION
     Dosage: UNIT DOSE: 15 ML
     Route: 048
     Dates: start: 20060731
  2. TOPROL-XL [Concomitant]
  3. PREDNISONE [Concomitant]
  4. LIPITOR [Concomitant]
  5. PLAVIX [Concomitant]
  6. LISINOPRIL [Concomitant]

REACTIONS (1)
  - FAECES DISCOLOURED [None]
